FAERS Safety Report 18721706 (Version 2)
Quarter: 2021Q1

REPORT INFORMATION
  Report Type: Spontaneous
  Country: US (occurrence: US)
  Receive Date: 20210110
  Receipt Date: 20210317
  Transmission Date: 20210419
  Serious: Yes (Hospitalization)
  Sender: FDA-Public Use
  Company Number: US-TEVA-2020-US-1865294

PATIENT
  Age: 60 Year
  Sex: Male

DRUGS (1)
  1. MESALAMINE. [Suspect]
     Active Substance: MESALAMINE
     Indication: COLITIS ULCERATIVE
     Dosage: FORMULATION: PILLS
     Route: 048

REACTIONS (2)
  - Abdominal pain upper [Recovered/Resolved]
  - Bezoar [Recovered/Resolved]
